FAERS Safety Report 12616660 (Version 1)
Quarter: 2016Q3

REPORT INFORMATION
  Report Type: Spontaneous
  Country: US (occurrence: IT)
  Receive Date: 20160802
  Receipt Date: 20160802
  Transmission Date: 20161109
  Serious: Yes (Hospitalization)
  Sender: FDA-Public Use
  Company Number: IT-FRI-1000086549

PATIENT
  Age: 61 Year
  Sex: Female

DRUGS (6)
  1. HALCION [Suspect]
     Active Substance: TRIAZOLAM
     Indication: BIPOLAR DISORDER
     Dosage: 7.5 MG
     Route: 048
     Dates: start: 20160709, end: 20160709
  2. LITHIUM CARBONATE. [Concomitant]
     Active Substance: LITHIUM CARBONATE
     Route: 048
     Dates: start: 20160101, end: 20160709
  3. XENAZINE [Concomitant]
     Active Substance: TETRABENAZINE
     Route: 048
     Dates: start: 20160101, end: 20160709
  4. ASENAPINE [Suspect]
     Active Substance: ASENAPINE
     Indication: BIPOLAR DISORDER
     Dosage: 100 MG
     Route: 060
     Dates: start: 20160709, end: 20160709
  5. DELORAZEPAM [Concomitant]
     Active Substance: DELORAZEPAM
     Route: 048
     Dates: start: 20160101, end: 20160709
  6. SERTRALINE [Concomitant]
     Active Substance: SERTRALINE HYDROCHLORIDE
     Route: 048
     Dates: start: 20160101, end: 20160709

REACTIONS (2)
  - Psychomotor retardation [Recovered/Resolved]
  - Disorganised speech [Recovered/Resolved]

NARRATIVE: CASE EVENT DATE: 20160710
